FAERS Safety Report 21039578 (Version 1)
Quarter: 2022Q3

REPORT INFORMATION
  Report Type: Spontaneous
  Country: IN (occurrence: IN)
  Receive Date: 20220704
  Receipt Date: 20220704
  Transmission Date: 20221027
  Serious: Yes (Other)
  Sender: FDA-Public Use
  Company Number: IN-PFIZER INC-202101843412

PATIENT
  Age: 36 Year
  Sex: Male

DRUGS (7)
  1. LORLATINIB [Suspect]
     Active Substance: LORLATINIB
     Indication: Non-small cell lung cancer
     Dosage: 75 MG, 1X/DAY
     Route: 048
     Dates: start: 20190821
  2. LORLATINIB [Suspect]
     Active Substance: LORLATINIB
     Dosage: 100 MG, CYCLIC (3 DAYS ON 1 DAYS OFF FOR 3 MONTHS)
     Route: 048
     Dates: start: 20190821
  3. LORLATINIB [Suspect]
     Active Substance: LORLATINIB
     Dosage: 100 MG, 1X/DAY
     Route: 048
     Dates: start: 201908
  4. ATORVASTATIN [Concomitant]
     Active Substance: ATORVASTATIN
     Dosage: 20 MG, 1X/DAY
  5. COBADEX [HYDROCORTISONE] [Concomitant]
     Dosage: 1 DF, 1X/DAY
  6. ZOLEDRONIC ACID [Concomitant]
     Active Substance: ZOLEDRONIC ACID
     Dosage: 4 MG
     Route: 042
  7. CALCIROL [COLECALCIFEROL] [Concomitant]
     Dosage: 60,000 1/MONTH

REACTIONS (6)
  - Blood creatinine increased [Unknown]
  - Paraesthesia [Unknown]
  - Haemoglobin decreased [Unknown]
  - Abdominal pain [Unknown]
  - Pleural thickening [Unknown]
  - Off label use [Unknown]

NARRATIVE: CASE EVENT DATE: 20190821
